FAERS Safety Report 8292069-1 (Version None)
Quarter: 2012Q2

REPORT INFORMATION
  Report Type: 
  Country: None (occurrence: None)
  Receive Date: 20120417
  Receipt Date: 20120403
  Transmission Date: 20120825
  Serious: Yes (Other)
  Sender: FDA-Public Use
  Company Number: ES-GILEAD-2012-0052966

PATIENT
  Sex: Male

DRUGS (12)
  1. OMEPRAZOLE [Concomitant]
     Dosage: 20 MG, QD
  2. TACROLIMUS [Concomitant]
     Indication: IMMUNOSUPPRESSANT DRUG THERAPY
     Dosage: UNK
  3. ALLOPURINOL [Concomitant]
     Dosage: 100 MG, QD
  4. URSOBILANE [Concomitant]
     Dosage: 300 MG, EVERY 8 HOURS
  5. ASPIRIN [Concomitant]
     Dosage: 100 MG, QD
  6. PROGRAF [Concomitant]
     Dosage: 1 MG, EVERY 12 HOURS
  7. CALCIUM CARBONATE [Concomitant]
  8. VIREAD [Suspect]
     Indication: HEPATITIS B
     Dosage: 245 MG, EACH 4DAYS
  9. ADALAT [Concomitant]
     Dosage: 20 MG, EVERY 12 HOURS
  10. LESCOL [Concomitant]
     Dosage: 40 MG, EVERY 48 HOURS
  11. VIREAD [Suspect]
     Dosage: 245 MG, EACH 5 DAYS
  12. URSOBILANE [Concomitant]
     Dosage: 1 DF, EVERY 12 HOURS

REACTIONS (2)
  - NEPHROTIC SYNDROME [None]
  - PROTEINURIA [None]
